FAERS Safety Report 5326482-9 (Version None)
Quarter: 2007Q2

REPORT INFORMATION
  Report Type: 
  Country: None (occurrence: None)
  Receive Date: 20070516
  Receipt Date: 20070515
  Transmission Date: 20071010
  Serious: Yes (Hospitalization)
  Sender: FDA-Public Use
  Company Number: BE-BRISTOL-MYERS SQUIBB COMPANY-13767165

PATIENT
  Age: 68 Year
  Sex: Female

DRUGS (1)
  1. DASATINIB [Suspect]
     Indication: BREAST CANCER
     Route: 048
     Dates: start: 20070424, end: 20070428

REACTIONS (3)
  - DEHYDRATION [None]
  - RENAL FAILURE ACUTE [None]
  - VOMITING [None]
